FAERS Safety Report 14188095 (Version 1)
Quarter: 2017Q4

REPORT INFORMATION
  Report Type: Report from Study
  Country: US (occurrence: US)
  Receive Date: 20171114
  Receipt Date: 20171114
  Transmission Date: 20180321
  Serious: Yes (Hospitalization, Other)
  Sender: FDA-Public Use
  Company Number: US-TAKEDA-2017MPI009963

PATIENT
  Age: 12 Year
  Sex: Male
  Weight: 46.1 kg

DRUGS (20)
  1. ERWINIA ASPARAGINASE [Suspect]
     Active Substance: ASPARAGINASE ERWINIA CHRYSANTHEMI
     Indication: PRECURSOR T-LYMPHOBLASTIC LYMPHOMA/LEUKAEMIA
     Dosage: UNK
     Route: 030
     Dates: start: 20170330
  2. ERWINIA ASPARAGINASE [Suspect]
     Active Substance: ASPARAGINASE ERWINIA CHRYSANTHEMI
     Dosage: UNK
     Route: 030
     Dates: start: 20170401
  3. MERCAPTOPURINE. [Suspect]
     Active Substance: MERCAPTOPURINE
     Dosage: 75 MG/M2, UNK
     Route: 048
     Dates: end: 20170227
  4. PEGASPARGASE [Suspect]
     Active Substance: PEGASPARGASE
     Dosage: UNK
     Route: 042
     Dates: end: 20170124
  5. PEGASPARGASE [Suspect]
     Active Substance: PEGASPARGASE
     Dosage: UNK
     Route: 065
     Dates: start: 20170303
  6. METHOTREXATE. [Suspect]
     Active Substance: METHOTREXATE
     Indication: PRECURSOR T-LYMPHOBLASTIC LYMPHOMA/LEUKAEMIA
     Dosage: UNK
     Route: 037
  7. METHOTREXATE. [Suspect]
     Active Substance: METHOTREXATE
     Dosage: 100 MG/M2, UNK
     Route: 042
     Dates: start: 20170329
  8. VINCRISTINE [Suspect]
     Active Substance: VINCRISTINE
     Dosage: 1.5 MG/M2, UNK
     Route: 042
     Dates: start: 20170329
  9. CYTARABINE. [Suspect]
     Active Substance: CYTARABINE
     Dosage: 75 MG/M2, UNK
     Route: 065
     Dates: end: 20170227
  10. METHOTREXATE. [Suspect]
     Active Substance: METHOTREXATE
     Dosage: 20 MG/M2, UNK
     Route: 048
  11. VINCRISTINE [Suspect]
     Active Substance: VINCRISTINE
     Dosage: 1.5 MG/M2, UNK
     Route: 042
     Dates: end: 20170310
  12. VELCADE [Suspect]
     Active Substance: BORTEZOMIB
     Dosage: 1.3 MG/M2, UNK
     Route: 042
     Dates: end: 20161217
  13. MERCAPTOPURINE. [Suspect]
     Active Substance: MERCAPTOPURINE
     Indication: PRECURSOR T-LYMPHOBLASTIC LYMPHOMA/LEUKAEMIA
     Dosage: 60 MG/M2, UNK
     Route: 048
  14. METHOTREXATE. [Suspect]
     Active Substance: METHOTREXATE
     Dosage: UNK
     Route: 037
     Dates: end: 20170131
  15. CYCLOPHOSPHAMIDE. [Suspect]
     Active Substance: CYCLOPHOSPHAMIDE
     Indication: PRECURSOR T-LYMPHOBLASTIC LYMPHOMA/LEUKAEMIA
     Dosage: 1000 MG/M2, UNK
     Route: 042
     Dates: end: 20170217
  16. METHOTREXATE. [Suspect]
     Active Substance: METHOTREXATE
     Dosage: UNK
     Route: 037
     Dates: start: 20170329
  17. VELCADE [Suspect]
     Active Substance: BORTEZOMIB
     Indication: PRECURSOR T-LYMPHOBLASTIC LYMPHOMA/LEUKAEMIA
     Dosage: UNK
     Route: 042
     Dates: start: 20161206
  18. CYTARABINE. [Suspect]
     Active Substance: CYTARABINE
     Indication: PRECURSOR T-LYMPHOBLASTIC LYMPHOMA/LEUKAEMIA
     Dosage: UNK
     Route: 037
     Dates: start: 20161206
  19. PEGASPARGASE [Suspect]
     Active Substance: PEGASPARGASE
     Indication: PRECURSOR T-LYMPHOBLASTIC LYMPHOMA/LEUKAEMIA
     Dosage: UNK
     Route: 042
  20. VINCRISTINE [Suspect]
     Active Substance: VINCRISTINE
     Indication: PRECURSOR T-LYMPHOBLASTIC LYMPHOMA/LEUKAEMIA
     Dosage: UNK
     Route: 042
     Dates: start: 20161206

REACTIONS (3)
  - Enterobacter bacteraemia [Recovered/Resolved]
  - Febrile neutropenia [Recovered/Resolved]
  - Septic embolus [Recovered/Resolved]

NARRATIVE: CASE EVENT DATE: 20170314
